FAERS Safety Report 6752281-7 (Version None)
Quarter: 2010Q2

REPORT INFORMATION
  Report Type: 
  Country: None (occurrence: None)
  Receive Date: 20100602
  Receipt Date: 20100520
  Transmission Date: 20101027
  Serious: Yes (Other)
  Sender: FDA-Public Use
  Company Number: PHHY2010US34158

PATIENT
  Age: 52 Year
  Sex: Female

DRUGS (11)
  1. BASILIXIMAB [Suspect]
     Indication: RENAL TRANSPLANT
     Dosage: UNK
  2. TACROLIMUS [Suspect]
     Indication: RENAL TRANSPLANT
  3. MYCOPHENOLATE MOFETIL [Suspect]
     Indication: RENAL TRANSPLANT
     Dosage: 500 MG, BID
  4. SIROLIMUS [Suspect]
     Indication: RENAL TRANSPLANT
  5. STEROIDS NOS [Suspect]
     Indication: RENAL TRANSPLANT
  6. VALGANCICLOVIR HCL [Concomitant]
  7. SULFAMETHOXAZOLE AND TRIMETHOPRIM [Concomitant]
  8. METOPROLOL TARTRATE [Concomitant]
  9. HYDRALAZINE HCL [Concomitant]
  10. FAMOTIDINE [Concomitant]
  11. SIMVASTATIN [Concomitant]

REACTIONS (5)
  - BLOOD ALKALINE PHOSPHATASE INCREASED [None]
  - BLOOD PARATHYROID HORMONE INCREASED [None]
  - BONE MARROW OEDEMA [None]
  - FOOT FRACTURE [None]
  - PAIN IN EXTREMITY [None]
